FAERS Safety Report 12444263 (Version 1)
Quarter: 2016Q2

REPORT INFORMATION
  Report Type: Spontaneous
  Country: US (occurrence: US)
  Receive Date: 20160607
  Receipt Date: 20160607
  Transmission Date: 20160815
  Serious: No
  Sender: FDA-Public Use
  Company Number: US-SA-2016SA091351

PATIENT
  Age: 68 Year
  Sex: Female

DRUGS (2)
  1. TOUJEO [Suspect]
     Active Substance: INSULIN GLARGINE
     Indication: LATENT AUTOIMMUNE DIABETES IN ADULTS
     Dosage: DOSE: 9-12 UNITS
     Route: 065
     Dates: start: 201602
  2. SOLOSTAR [Concomitant]
     Active Substance: DEVICE
     Dates: start: 201602

REACTIONS (3)
  - Drug ineffective [Unknown]
  - Hypoglycaemia [Unknown]
  - Blood glucose increased [Unknown]
